FAERS Safety Report 15030695 (Version 1)
Quarter: 2018Q2

REPORT INFORMATION
  Report Type: Spontaneous
  Country: IT (occurrence: IT)
  Receive Date: 20180619
  Receipt Date: 20180619
  Transmission Date: 20180711
  Serious: Yes (Other)
  Sender: FDA-Public Use
  Company Number: PHHY2018IT024808

PATIENT
  Age: 66 Year
  Sex: Female
  Weight: 73 kg

DRUGS (5)
  1. FLUOR-URACIL [Suspect]
     Active Substance: FLUOROURACIL
     Dosage: 4120 MG, CYCLIC
     Route: 042
     Dates: start: 20170817, end: 20180306
  2. LEVOLEUCOVORIN. [Concomitant]
     Active Substance: LEVOLEUCOVORIN
     Indication: ADENOCARCINOMA OF COLON
     Dosage: 340 MG, CYCLIC
     Route: 042
     Dates: start: 20170817, end: 20180306
  3. FLUOR-URACIL [Suspect]
     Active Substance: FLUOROURACIL
     Indication: ADENOCARCINOMA OF COLON
     Dosage: 688 MG, CYCLIC
     Route: 040
     Dates: start: 20170817, end: 20180306
  4. OXALIPLATIN. [Suspect]
     Active Substance: OXALIPLATIN
     Indication: ADENOCARCINOMA OF COLON
     Dosage: 140 MG, CYCLIC
     Route: 042
     Dates: start: 20170817, end: 20171109
  5. AVASTIN [Suspect]
     Active Substance: BEVACIZUMAB
     Indication: ADENOCARCINOMA OF COLON
     Dosage: 350 MG, CYCLIC
     Route: 042
     Dates: start: 20170817, end: 20171109

REACTIONS (1)
  - Urinary tract infection [Recovering/Resolving]

NARRATIVE: CASE EVENT DATE: 20171009
